FAERS Safety Report 14992432 (Version 3)
Quarter: 2018Q4

REPORT INFORMATION
  Report Type: Report from Study
  Country: DE (occurrence: DE)
  Receive Date: 20180609
  Receipt Date: 20181214
  Transmission Date: 20190204
  Serious: Yes (Death, Life-Threatening, Hospitalization, Other)
  Sender: FDA-Public Use
  Company Number: DE-TEVA-2018-DE-904004

PATIENT
  Age: 55 Year
  Sex: Male

DRUGS (5)
  1. DEXAMETHASONE. [Suspect]
     Active Substance: DEXAMETHASONE
     Indication: PLASMA CELL MYELOMA
     Route: 065
  2. BORTEZOMIB. [Suspect]
     Active Substance: BORTEZOMIB
     Indication: PLASMA CELL MYELOMA
     Route: 065
  3. FARYDAK [Suspect]
     Active Substance: PANOBINOSTAT
     Indication: PLASMA CELL MYELOMA
     Dosage: 10 MILLIGRAM DAILY; 10 MG, QD, ONCE WEEKLY, 2 WEEKS ON, 1 WEEK OFF
     Route: 048
     Dates: start: 20170228, end: 20170624
  4. DARATUMUMAB [Concomitant]
     Active Substance: DARATUMUMAB
     Indication: MALIGNANT NEOPLASM PROGRESSION
  5. DARATUMUMAB [Concomitant]
     Active Substance: DARATUMUMAB
     Indication: PLASMA CELL MYELOMA
     Dosage: 46 MILLIGRAM DAILY;
     Route: 065
     Dates: start: 20170712

REACTIONS (6)
  - Tachycardia [Not Recovered/Not Resolved]
  - Heart rate increased [Fatal]
  - Pyrexia [Recovered/Resolved]
  - Bone pain [Not Recovered/Not Resolved]
  - Pancytopenia [Not Recovered/Not Resolved]
  - Septic shock [Fatal]

NARRATIVE: CASE EVENT DATE: 20170505
